FAERS Safety Report 9373344 (Version 1)
Quarter: 2013Q2

REPORT INFORMATION
  Report Type: Spontaneous
  Country: JP (occurrence: JP)
  Receive Date: 20130627
  Receipt Date: 20130627
  Transmission Date: 20140414
  Serious: Yes (Other)
  Sender: FDA-Public Use
  Company Number: JP-GLAXOSMITHKLINE-B0902564A

PATIENT
  Age: 87 Year
  Sex: Female

DRUGS (2)
  1. REQUIP [Suspect]
     Indication: PRODUCT USED FOR UNKNOWN INDICATION
     Route: 048
  2. UNKNOWN DRUG [Concomitant]
     Route: 065

REACTIONS (2)
  - Loss of consciousness [Recovered/Resolved]
  - Cerebral ischaemia [Unknown]
